FAERS Safety Report 24076358 (Version 1)
Quarter: 2024Q3

REPORT INFORMATION
  Report Type: Spontaneous
  Country: US (occurrence: None)
  Receive Date: 20240711
  Receipt Date: 20240711
  Transmission Date: 20241016
  Serious: No
  Sender: ENCUBE ETHICALS
  Company Number: US-Encube-000800

PATIENT
  Age: 79 Year
  Sex: Female

DRUGS (3)
  1. CLOBETASOL PROPIONATE [Suspect]
     Active Substance: CLOBETASOL PROPIONATE
     Indication: Eczema
     Dosage: PRESCRIBED FOR TWICE A DAY, BUT?SOMETIMES SHE USED IT MORE THAN TWICE A DAY
     Dates: start: 2024, end: 2024
  2. KETOCONAZOLE [Concomitant]
     Active Substance: KETOCONAZOLE
     Indication: Fungal infection
     Dosage: HALF-INCH OF MEDICATION TWO TO FOUR TIMES A DAY
  3. METOPROLOL [Concomitant]
     Active Substance: METOPROLOL

REACTIONS (10)
  - Skin irritation [Unknown]
  - Acne [Unknown]
  - Scratch [Unknown]
  - Off label use [Unknown]
  - Dry skin [Not Recovered/Not Resolved]
  - Pruritus [Not Recovered/Not Resolved]
  - Skin exfoliation [Not Recovered/Not Resolved]
  - Drug ineffective [Unknown]
  - Inappropriate schedule of product administration [Unknown]
  - Haemorrhage [Unknown]

NARRATIVE: CASE EVENT DATE: 20240101
